FAERS Safety Report 4344188-X (Version None)
Quarter: 2004Q2

REPORT INFORMATION
  Report Type: 
  Country: None (occurrence: None)
  Receive Date: 20040419
  Receipt Date: 20040412
  Transmission Date: 20050107
  Serious: Yes (Hospitalization, Other)
  Sender: FDA-Public Use
  Company Number: 2004-02-0643

PATIENT
  Age: 47 Year
  Sex: Female

DRUGS (5)
  1. AERIUS (DESLORATADINE) TABLETS [Suspect]
     Indication: URTICARIA CHRONIC
     Dosage: 1 TAB Q DAY ORAL
     Route: 048
     Dates: start: 20030828, end: 20031101
  2. ATARAX [Suspect]
     Indication: URTICARIA
     Dosage: 1 TABLET BID ORAL
     Route: 048
     Dates: start: 20030801, end: 20031101
  3. EBASTINE ORAL [Concomitant]
  4. IBUPROFEN [Concomitant]
  5. ACETAMINOPHEN [Concomitant]

REACTIONS (6)
  - AUTOIMMUNE HEPATITIS [None]
  - CHOLESTASIS [None]
  - HEPATIC FAILURE [None]
  - HEPATIC NECROSIS [None]
  - HEPATITIS TOXIC [None]
  - PROTHROMBIN TIME SHORTENED [None]
